FAERS Safety Report 7266577-6 (Version None)
Quarter: 2011Q1

REPORT INFORMATION
  Report Type: 
  Country: None (occurrence: None)
  Receive Date: 20110131
  Receipt Date: 20110118
  Transmission Date: 20110831
  Serious: Yes (Disabling, Other)
  Sender: FDA-Public Use
  Company Number: GB-B.I. PHARMACEUTICALS,INC./RIDGEFIELD-2011-UK-00041UK

PATIENT
  Age: 82 Year
  Sex: Male
  Weight: 82 kg

DRUGS (4)
  1. OMEPRAZOLE [Concomitant]
     Dates: start: 20100920
  2. PRAMIPEXOLE DIHYDROCHLORIDE [Suspect]
     Indication: RESTLESS LEGS SYNDROME
     Dosage: 88 MCG
  3. ACETAMINOPHEN [Concomitant]
  4. ZOPICLONE [Concomitant]
     Dates: start: 20100920

REACTIONS (1)
  - CONFUSIONAL STATE [None]
